FAERS Safety Report 7578382-1 (Version None)
Quarter: 2011Q2

REPORT INFORMATION
  Report Type: 
  Country: None (occurrence: None)
  Receive Date: 20110621
  Receipt Date: 20110617
  Transmission Date: 20111010
  Serious: Yes (Death)
  Sender: FDA-Public Use
  Company Number: 2011SP006502

PATIENT
  Age: 79 Year
  Sex: Male
  Weight: 69.3 kg

DRUGS (16)
  1. HANP [Concomitant]
  2. ROCURONIUM BROMIDE [Suspect]
     Indication: PRODUCT USED FOR UNKNOWN INDICATION
     Dosage: 250 MG;INDRP
     Route: 041
     Dates: start: 20110202, end: 20110202
  3. ULTIVA [Concomitant]
  4. LASIX [Concomitant]
  5. DOBUPUM [Concomitant]
  6. PROPOFOL [Suspect]
     Indication: PRODUCT USED FOR UNKNOWN INDICATION
     Dosage: INDRP
     Route: 041
     Dates: start: 20110202
  7. METHYLPREDNISOLONE SODIUM SUCCINATE [Concomitant]
  8. HEPARIN [Concomitant]
  9. SEVOFLURANE [Suspect]
     Indication: PRODUCT USED FOR UNKNOWN INDICATION
     Dosage: INH
     Route: 055
     Dates: start: 20110202
  10. DOPAMINE /00360702/ [Concomitant]
  11. ATROPINE [Concomitant]
  12. PENFILL R [Concomitant]
  13. FAMOTIDINE [Concomitant]
  14. NITRAZEPAM [Concomitant]
  15. MILRILA [Concomitant]
  16. FENTANYL [Concomitant]

REACTIONS (12)
  - PLATELET COUNT DECREASED [None]
  - CONTINUOUS HAEMODIAFILTRATION [None]
  - RENAL FAILURE [None]
  - CARDIO-RESPIRATORY ARREST [None]
  - HAEMORRHAGIC DIATHESIS [None]
  - MULTI-ORGAN FAILURE [None]
  - BRAIN DEATH [None]
  - RHABDOMYOLYSIS [None]
  - MYDRIASIS [None]
  - AORTIC VALVE PROLAPSE [None]
  - MELAENA [None]
  - ANAEMIA [None]
